FAERS Safety Report 8857263 (Version 1)
Quarter: 2012Q4

REPORT INFORMATION
  Report Type: 
  Country: BR (occurrence: BR)
  Receive Date: 20121024
  Receipt Date: 20121024
  Transmission Date: 20130627
  Serious: Yes (Other)
  Sender: FDA-Public Use
  Company Number: BR-AMGEN-BRASP2012066382

PATIENT
  Age: 43 Year
  Sex: Female
  Weight: 87 kg

DRUGS (1)
  1. ENBREL [Suspect]
     Indication: PSORIATIC ARTHROPATHY
     Dosage: 50 mg, 1x/week
     Dates: start: 20120419, end: 20120524

REACTIONS (2)
  - Rash generalised [Unknown]
  - Rash pustular [Unknown]
